FAERS Safety Report 8123222-5 (Version None)
Quarter: 2012Q1

REPORT INFORMATION
  Report Type: 
  Country: None (occurrence: None)
  Receive Date: 20120208
  Receipt Date: 20120201
  Transmission Date: 20120608
  Serious: Yes (Death)
  Sender: FDA-Public Use
  Company Number: JP-AMGEN-JPNCT2012007548

PATIENT
  Age: 81 Year
  Sex: Female
  Weight: 51 kg

DRUGS (15)
  1. ROMIPLATE [Suspect]
     Route: 058
     Dates: start: 20111006, end: 20111013
  2. GAMIMUNE N 5% [Concomitant]
  3. FAMOTIDINE [Concomitant]
  4. ALLOID G [Concomitant]
  5. ROMIPLATE [Suspect]
     Route: 058
     Dates: start: 20110901, end: 20110901
  6. RABEPRAZOLE SODIUM [Concomitant]
  7. ROMIPLATE [Suspect]
     Route: 058
     Dates: start: 20110922, end: 20110929
  8. ROMIPLATE [Suspect]
     Route: 058
     Dates: start: 20111104, end: 20111104
  9. ROMIPLATE [Suspect]
     Indication: IDIOPATHIC THROMBOCYTOPENIC PURPURA
     Route: 058
     Dates: start: 20110818, end: 20110818
  10. ROMIPLATE [Suspect]
     Route: 058
     Dates: start: 20111020, end: 20111027
  11. ROMIPLATE [Suspect]
     Route: 058
     Dates: start: 20110825, end: 20110825
  12. ROMIPLATE [Suspect]
     Route: 058
     Dates: start: 20110908, end: 20110908
  13. ROMIPLATE [Suspect]
     Route: 058
     Dates: start: 20110915, end: 20110915
  14. ROMIPLATE [Suspect]
     Route: 058
     Dates: start: 20111110, end: 20120119
  15. NEORAL [Concomitant]
     Dosage: UNK

REACTIONS (2)
  - DROWNING [None]
  - HAEMORRHAGE INTRACRANIAL [None]
